FAERS Safety Report 7556573-3 (Version None)
Quarter: 2011Q2

REPORT INFORMATION
  Report Type: 
  Country: None (occurrence: None)
  Receive Date: 20110620
  Receipt Date: 20110608
  Transmission Date: 20111010
  Serious: Yes (Hospitalization, Other)
  Sender: FDA-Public Use
  Company Number: US-ELI_LILLY_AND_COMPANY-US201106003490

PATIENT
  Sex: Female

DRUGS (10)
  1. GABAPENTIN [Concomitant]
  2. DILAUDID [Concomitant]
     Dosage: UNK, QD
  3. FISH OIL [Concomitant]
  4. THYROID THERAPY [Concomitant]
  5. MULTI-VITAMIN [Concomitant]
  6. ANTIDEPRESSANTS [Concomitant]
  7. FORTEO [Suspect]
     Indication: OSTEOPOROSIS
     Dosage: 20 UG, UNK
  8. VITAMIN D [Concomitant]
  9. TEMAZEPAM [Concomitant]
  10. OXYCONTIN [Concomitant]
     Dosage: UNK, BID

REACTIONS (7)
  - MALNUTRITION [None]
  - FLUID INTAKE REDUCED [None]
  - MEDICATION ERROR [None]
  - DECREASED APPETITE [None]
  - RENAL FAILURE [None]
  - FEELING ABNORMAL [None]
  - SYNCOPE [None]
